FAERS Safety Report 6998666-5 (Version None)
Quarter: 2010Q3

REPORT INFORMATION
  Report Type: 
  Country: None (occurrence: None)
  Receive Date: 20100920
  Receipt Date: 20091201
  Transmission Date: 20110219
  Serious: Yes (Hospitalization)
  Sender: FDA-Public Use
  Company Number: US-ASTRAZENECA-2009SE29582

PATIENT
  Sex: Female

DRUGS (8)
  1. SEROQUEL [Suspect]
     Route: 048
  2. OMEPRAZOLE [Concomitant]
  3. RANITIDINE [Concomitant]
  4. ATENOLOL [Concomitant]
  5. FOSAMAX [Concomitant]
  6. TIGAN [Concomitant]
  7. SIMVASTATIN [Concomitant]
  8. LISINOPRIL [Concomitant]

REACTIONS (1)
  - DEEP VEIN THROMBOSIS [None]
